FAERS Safety Report 7110099-X (Version None)
Quarter: 2010Q4

REPORT INFORMATION
  Report Type: 
  Country: None (occurrence: None)
  Receive Date: 20101112
  Receipt Date: 20101027
  Transmission Date: 20110411
  Serious: Yes (Hospitalization, Disabling)
  Sender: FDA-Public Use
  Company Number: 1-18122996

PATIENT
  Age: 57 Year
  Sex: Female
  Weight: 56.6996 kg

DRUGS (20)
  1. QUININE SULFATE [Suspect]
     Indication: MUSCLE SPASMS
     Dosage: 324MG, AS NEEDED, ORAL
     Route: 048
     Dates: start: 20000421, end: 20080101
  2. METFORMIN [Concomitant]
  3. RANITIDINE [Concomitant]
  4. LIPITOR [Concomitant]
  5. VICODIN [Concomitant]
  6. LASIX [Concomitant]
  7. LISINOPRIL [Concomitant]
  8. PROTONIX [Concomitant]
  9. CARTIA XT [Concomitant]
  10. ZANTAC [Concomitant]
  11. CAFERGOT [Concomitant]
  12. ASPIRIN [Concomitant]
  13. NITROGLYCERIN [Concomitant]
  14. GLUCOPHAGE [Concomitant]
  15. AMARYL [Concomitant]
  16. AMITRIPTYLINE [Concomitant]
  17. ACTOS [Concomitant]
  18. CARVEDILOL [Concomitant]
  19. MAVIK [Concomitant]
  20. CHLORDIAZEPOXIDE/CLIDINIUM [Concomitant]

REACTIONS (12)
  - ADVERSE EVENT [None]
  - ANXIETY [None]
  - CHEST PAIN [None]
  - EMOTIONAL DISTRESS [None]
  - FEAR [None]
  - GRIEF REACTION [None]
  - HAEMODIALYSIS [None]
  - MENTAL DISORDER [None]
  - NERVOUSNESS [None]
  - PAIN [None]
  - RENAL FAILURE [None]
  - SHOCK [None]
